FAERS Safety Report 17444722 (Version 2)
Quarter: 2024Q1

REPORT INFORMATION
  Report Type: Spontaneous
  Country: DE (occurrence: DE)
  Receive Date: 20200221
  Receipt Date: 20240320
  Transmission Date: 20240410
  Serious: Yes (Hospitalization)
  Sender: FDA-Public Use
  Company Number: DE-ADRED-04374-01

PATIENT
  Age: 36 Year
  Sex: Female

DRUGS (1)
  1. AMOXICILLIN\CLAVULANIC ACID [Suspect]
     Active Substance: AMOXICILLIN\CLAVULANIC ACID
     Indication: Product used for unknown indication
     Dosage: AMOXICILLIN/CLAVULANS?URE, NK MG, NK
     Route: 065

REACTIONS (5)
  - Urticaria [Unknown]
  - Blister [Unknown]
  - Oedema peripheral [Unknown]
  - Rash [Unknown]
  - Rash [Unknown]
